FAERS Safety Report 23491086 (Version 3)
Quarter: 2024Q1

REPORT INFORMATION
  Report Type: Spontaneous
  Country: NG (occurrence: NG)
  Receive Date: 20240207
  Receipt Date: 20240214
  Transmission Date: 20240410
  Serious: Yes (Hospitalization, Other)
  Sender: FDA-Public Use
  Company Number: NG-002147023-NVSC2024NG024356

PATIENT

DRUGS (1)
  1. VOLTAREN [Suspect]
     Active Substance: DICLOFENAC SODIUM
     Indication: Ear pain
     Dosage: UNK UNK, QID(TOOK FOUR TABLETS IN A DAY)
     Route: 048
     Dates: start: 20231226, end: 20231227

REACTIONS (4)
  - Skin reaction [Recovering/Resolving]
  - Ear infection [Unknown]
  - Ear pain [Recovering/Resolving]
  - Counterfeit product administered [Unknown]

NARRATIVE: CASE EVENT DATE: 20240106
